FAERS Safety Report 4719018-4 (Version None)
Quarter: 2005Q3

REPORT INFORMATION
  Report Type: 
  Country: None (occurrence: None)
  Receive Date: 20050719
  Receipt Date: 20050701
  Transmission Date: 20060218
  Serious: Yes (Other)
  Sender: FDA-Public Use
  Company Number: FR-2005-002016

PATIENT
  Age: 56 Year
  Sex: Male

DRUGS (5)
  1. BETAFERON 250 UG, 500 UG AND COPAXONE(CODE NOT BROKEN) INJECTION, 500U [Suspect]
     Indication: MULTIPLE SCLEROSIS
     Dosage: 250 MICROGRAM OR 500 MICROGRAM, EVERY 2D, SUBCUTANEOUS
     Route: 058
     Dates: start: 20040930, end: 20050208
  2. ATENOLOL [Concomitant]
  3. VALSARTAN [Concomitant]
  4. ACETAMINOPHEN [Concomitant]
  5. CLONAZEPAM [Concomitant]

REACTIONS (7)
  - ABDOMINAL PAIN [None]
  - ALANINE AMINOTRANSFERASE INCREASED [None]
  - ASPARTATE AMINOTRANSFERASE INCREASED [None]
  - BLOOD ALKALINE PHOSPHATASE INCREASED [None]
  - DRUG TOXICITY [None]
  - GAMMA-GLUTAMYLTRANSFERASE INCREASED [None]
  - GLUCOSE TOLERANCE TEST ABNORMAL [None]
